FAERS Safety Report 4399870-5 (Version None)
Quarter: 2004Q3

REPORT INFORMATION
  Report Type: 
  Country: None (occurrence: None)
  Receive Date: 20040714
  Receipt Date: 20040709
  Transmission Date: 20050211
  Serious: Yes (Other)
  Sender: FDA-Public Use
  Company Number: CIP04001469

PATIENT
  Sex: Male

DRUGS (1)
  1. ACTONEL [Suspect]
     Indication: OSTEITIS DEFORMANS
     Dosage: 30 MG, DAILY, ORAL
     Route: 048

REACTIONS (1)
  - RETINOPATHY PROLIFERATIVE [None]
